FAERS Safety Report 13823658 (Version 1)
Quarter: 2017Q3

REPORT INFORMATION
  Report Type: Spontaneous
  Country: US (occurrence: US)
  Receive Date: 20170802
  Receipt Date: 20170802
  Transmission Date: 20171127
  Serious: Yes (Hospitalization, Other)
  Sender: FDA-Public Use
  Company Number: US-AUROBINDO-AUR-APL-2017-38119

PATIENT
  Age: 56 Year
  Sex: Male

DRUGS (4)
  1. AMPICILLIN [Suspect]
     Active Substance: AMPICILLIN
     Indication: ENTEROCOCCAL BACTERAEMIA
     Route: 042
  2. GENTAMICIN. [Suspect]
     Active Substance: GENTAMICIN
     Indication: ENDOCARDITIS
     Route: 042
  3. AMPICILLIN [Suspect]
     Active Substance: AMPICILLIN
     Indication: ENDOCARDITIS
     Dosage: UNK
     Route: 042
  4. GENTAMICIN. [Suspect]
     Active Substance: GENTAMICIN
     Indication: ENTEROCOCCAL BACTERAEMIA
     Route: 042

REACTIONS (1)
  - Acute kidney injury [Recovering/Resolving]
